FAERS Safety Report 7366964-1 (Version None)
Quarter: 2011Q1

REPORT INFORMATION
  Report Type: 
  Country: None (occurrence: None)
  Receive Date: 20110322
  Receipt Date: 20110318
  Transmission Date: 20110831
  Serious: No
  Sender: FDA-Public Use
  Company Number: US-PFIZER INC-2011017929

PATIENT
  Sex: Female
  Weight: 63.492 kg

DRUGS (3)
  1. EXCEDRIN (MIGRAINE) [Concomitant]
     Indication: HEADACHE
     Dosage: UNK
  2. ADVIL PM [Suspect]
     Indication: INSOMNIA
     Dosage: UNKNOWN DOSE, 2X/DAY
     Route: 048
     Dates: start: 20090101
  3. MELATONIN [Suspect]
     Indication: INSOMNIA
     Dosage: UNK

REACTIONS (2)
  - DEPRESSION [None]
  - DRUG EFFECT DECREASED [None]
